FAERS Safety Report 10815153 (Version 1)
Quarter: 2015Q1

REPORT INFORMATION
  Report Type: Spontaneous
  Country: US (occurrence: US)
  Receive Date: 20150218
  Receipt Date: 20150218
  Transmission Date: 20150721
  Serious: Yes (Death, Other)
  Sender: FDA-Public Use
  Company Number: US-UNITED THERAPEUTICS-UNT-2015-000705

PATIENT
  Age: 37 Year
  Sex: Female
  Weight: 55.51 kg

DRUGS (1)
  1. REMODULIN [Suspect]
     Active Substance: TREPROSTINIL
     Indication: PULMONARY ARTERIAL HYPERTENSION
     Dosage: 0.017 ?G/KG, CONTINUING
     Route: 058
     Dates: start: 20150116

REACTIONS (23)
  - Dizziness [Unknown]
  - Nausea [Unknown]
  - Anaemia [Unknown]
  - Thrombocytopenia [Unknown]
  - Headache [Unknown]
  - Fatigue [Unknown]
  - Oedema peripheral [Unknown]
  - Abdominal discomfort [Unknown]
  - Decreased appetite [Unknown]
  - Hyperacusis [Unknown]
  - Back pain [Unknown]
  - Contusion [Unknown]
  - Epistaxis [Unknown]
  - Infusion site pain [Unknown]
  - Tachycardia [Unknown]
  - Asthenia [Unknown]
  - Pain in jaw [Unknown]
  - Death [Fatal]
  - Blood pressure decreased [Unknown]
  - Sinus congestion [Unknown]
  - Dyspnoea exertional [Unknown]
  - Ascites [Unknown]
  - Breath sounds abnormal [Unknown]

NARRATIVE: CASE EVENT DATE: 201501
